FAERS Safety Report 8170668-5 (Version None)
Quarter: 2012Q1

REPORT INFORMATION
  Report Type: 
  Country: None (occurrence: None)
  Receive Date: 20120228
  Receipt Date: 20120217
  Transmission Date: 20120608
  Serious: Yes (Hospitalization)
  Sender: FDA-Public Use
  Company Number: US-JNJFOC-20120210750

PATIENT
  Sex: Male
  Weight: 46.6 kg

DRUGS (8)
  1. REMICADE [Suspect]
     Indication: INFLAMMATORY BOWEL DISEASE
     Route: 042
     Dates: start: 20050728, end: 20060609
  2. MESALAMINE [Concomitant]
     Indication: INFLAMMATORY BOWEL DISEASE
  3. REMICADE [Suspect]
     Route: 042
     Dates: start: 20091006, end: 20091117
  4. FERROUS SULFATE TAB [Concomitant]
  5. MULTI-VITAMINS [Concomitant]
  6. ADALIMUMAB [Concomitant]
     Indication: INFLAMMATORY BOWEL DISEASE
     Dates: start: 20110708
  7. REMICADE [Suspect]
     Route: 042
     Dates: start: 20110514, end: 20110624
  8. PROBIOTICS [Concomitant]

REACTIONS (1)
  - ANAL FISTULA [None]
